FAERS Safety Report 5057629-X (Version None)
Quarter: 2006Q3

REPORT INFORMATION
  Report Type: 
  Country: None (occurrence: None)
  Receive Date: 20060721
  Receipt Date: 20060104
  Transmission Date: 20061208
  Serious: No
  Sender: FDA-Public Use
  Company Number: US-GLAXOSMITHKLINE-A0587742A

PATIENT
  Age: 60 Year
  Sex: Female

DRUGS (6)
  1. AVANDIA [Suspect]
     Route: 048
     Dates: start: 20051221
  2. METFORMIN [Concomitant]
  3. LEVOXYL [Concomitant]
  4. TOPROL-XL [Concomitant]
  5. HYZAAR [Concomitant]
  6. ASPIRIN [Concomitant]

REACTIONS (4)
  - DIZZINESS [None]
  - EMOTIONAL DISORDER [None]
  - EYE DISCHARGE [None]
  - RASH [None]
